FAERS Safety Report 23589370 (Version 2)
Quarter: 2024Q1

REPORT INFORMATION
  Report Type: Spontaneous
  Country: US (occurrence: US)
  Receive Date: 20240304
  Receipt Date: 20240320
  Transmission Date: 20240410
  Serious: No
  Sender: FDA-Public Use
  Company Number: US-SA-SAC20240223000248

PATIENT
  Age: 72 Year
  Sex: Female

DRUGS (21)
  1. DUPIXENT [Suspect]
     Active Substance: DUPILUMAB
     Indication: Dermatitis atopic
     Dosage: 1 DF, QOW
     Route: 058
     Dates: start: 20230927
  2. HUMIRA [Concomitant]
     Active Substance: ADALIMUMAB
  3. HUMIRA [Concomitant]
     Active Substance: ADALIMUMAB
  4. AMOXICILLIN [Concomitant]
     Active Substance: AMOXICILLIN
  5. AMOXICILLIN [Concomitant]
     Active Substance: AMOXICILLIN
  6. OTEZLA [Concomitant]
     Active Substance: APREMILAST
  7. OTEZLA [Concomitant]
     Active Substance: APREMILAST
  8. XIGDUO XR [Concomitant]
     Active Substance: DAPAGLIFLOZIN PROPANEDIOL\METFORMIN HYDROCHLORIDE
  9. XIGDUO XR [Concomitant]
     Active Substance: DAPAGLIFLOZIN PROPANEDIOL\METFORMIN HYDROCHLORIDE
  10. TRADJENTA [Concomitant]
     Active Substance: LINAGLIPTIN
  11. TRADJENTA [Concomitant]
     Active Substance: LINAGLIPTIN
  12. HYDROCHLOROTHIAZIDE\IRBESARTAN [Concomitant]
     Active Substance: HYDROCHLOROTHIAZIDE\IRBESARTAN
  13. ATORVASTATIN [Concomitant]
     Active Substance: ATORVASTATIN
  14. ATORVASTATIN [Concomitant]
     Active Substance: ATORVASTATIN
  15. FISH OIL [Concomitant]
     Active Substance: FISH OIL
  16. FISH OIL [Concomitant]
     Active Substance: FISH OIL
  17. MINERALS\VITAMINS [Concomitant]
     Active Substance: MINERALS\VITAMINS
  18. MINERALS\VITAMINS [Concomitant]
     Active Substance: MINERALS\VITAMINS
  19. VITAMINS NOS [Concomitant]
     Active Substance: VITAMINS
  20. SYSTANE (HYPROMELLOSE 2910 (4000 MPA.S)) [Concomitant]
     Active Substance: HYPROMELLOSE 2910 (4000 MPA.S)
  21. SYSTANE (HYPROMELLOSE 2910 (4000 MPA.S)) [Concomitant]
     Active Substance: HYPROMELLOSE 2910 (4000 MPA.S)

REACTIONS (3)
  - Hepatic steatosis [Unknown]
  - Dermatitis atopic [Unknown]
  - Eczema [Unknown]

NARRATIVE: CASE EVENT DATE: 20240120
